FAERS Safety Report 20361829 (Version 1)
Quarter: 2022Q1

REPORT INFORMATION
  Report Type: Report from Study
  Country: IT (occurrence: IT)
  Receive Date: 20220121
  Receipt Date: 20220121
  Transmission Date: 20220424
  Serious: Yes (Other)
  Sender: FDA-Public Use
  Company Number: IT-SA-SAC20220110000372

PATIENT

DRUGS (3)
  1. PRALUENT [Suspect]
     Active Substance: ALIROCUMAB
     Indication: Product used for unknown indication
     Dosage: 75 MILLIGRAM, QOW
     Dates: start: 20200709
  2. PRALUENT [Suspect]
     Active Substance: ALIROCUMAB
     Dosage: UNK
  3. EZETIMIBE [Concomitant]
     Active Substance: EZETIMIBE
     Indication: Product used for unknown indication
     Dosage: UNK

REACTIONS (6)
  - Myocardial infarction [Unknown]
  - Angina pectoris [Unknown]
  - Drug intolerance [Unknown]
  - Depression [Unknown]
  - Anxiety [Unknown]
  - Angioplasty [Unknown]

NARRATIVE: CASE EVENT DATE: 20201216
